FAERS Safety Report 22067264 (Version 23)
Quarter: 2023Q4

REPORT INFORMATION
  Report Type: Spontaneous
  Country: US (occurrence: US)
  Receive Date: 20230307
  Receipt Date: 20231229
  Transmission Date: 20240109
  Serious: Yes (Other)
  Sender: FDA-Public Use
  Company Number: US-UNITED THERAPEUTICS-UNT-2023-001857

PATIENT
  Sex: Female

DRUGS (20)
  1. TYVASO DPI [Suspect]
     Active Substance: TREPROSTINIL
     Indication: Pulmonary arterial hypertension
     Dosage: 64 ?G, QID
     Dates: start: 202302, end: 202303
  2. TYVASO DPI [Suspect]
     Active Substance: TREPROSTINIL
     Dosage: 16 ?G, QID
     Dates: start: 202303, end: 202303
  3. TYVASO DPI [Suspect]
     Active Substance: TREPROSTINIL
     Dosage: UNK
     Dates: start: 202301, end: 20230314
  4. TYVASO DPI [Suspect]
     Active Substance: TREPROSTINIL
     Indication: Pulmonary arterial hypertension
     Dosage: UNK
  5. TYVASO DPI [Suspect]
     Active Substance: TREPROSTINIL
     Indication: Pulmonary arterial hypertension
     Dosage: UNK
  6. TYVASO DPI [Suspect]
     Active Substance: TREPROSTINIL
     Indication: Pulmonary arterial hypertension
     Dosage: UNK
  7. TYVASO [Suspect]
     Active Substance: TREPROSTINIL
     Indication: Pulmonary arterial hypertension
     Dosage: 18-30 ?G, QID
     Dates: start: 202303, end: 2023
  8. TYVASO [Suspect]
     Active Substance: TREPROSTINIL
     Dosage: 30 ?G, QID
     Dates: start: 2023, end: 2023
  9. TYVASO [Suspect]
     Active Substance: TREPROSTINIL
     Dosage: 36 ?G, QID
     Dates: start: 2023, end: 2023
  10. TYVASO [Suspect]
     Active Substance: TREPROSTINIL
     Dosage: 36 ?G, (5 TIMES A DAY)
     Dates: start: 2023, end: 2023
  11. TYVASO [Suspect]
     Active Substance: TREPROSTINIL
     Dosage: 42 ?G, QID
     Dates: start: 2023, end: 2023
  12. TYVASO [Suspect]
     Active Substance: TREPROSTINIL
     Dosage: 48 ?G, QID
     Dates: start: 2023, end: 2023
  13. TYVASO [Suspect]
     Active Substance: TREPROSTINIL
     Dosage: 48 ?G, (5 TIMES A DAY)
     Dates: start: 2023, end: 2023
  14. TYVASO [Suspect]
     Active Substance: TREPROSTINIL
     Dosage: 54 ?G, 5 TIMES A DAY
     Dates: start: 2023, end: 2023
  15. TYVASO [Suspect]
     Active Substance: TREPROSTINIL
     Dosage: 5 TIMES A DAY (2 TIMES A DAY TAKING 10 BREATHS AND THREE TIMES A DAY TAKING 9 BREATHS)
     Dates: start: 2023, end: 2023
  16. TYVASO [Suspect]
     Active Substance: TREPROSTINIL
     Dosage: 60 ?G, QID
     Dates: start: 2023, end: 2023
  17. TYVASO [Suspect]
     Active Substance: TREPROSTINIL
     Dosage: 60 ?G, 5 TIMES A DAY
     Dates: start: 2023
  18. TYVASO [Suspect]
     Active Substance: TREPROSTINIL
     Dosage: UNK
     Dates: start: 202303
  19. TADALAFIL [Concomitant]
     Active Substance: TADALAFIL
     Indication: Product used for unknown indication
     Dosage: UNK
     Route: 065
  20. OPSUMIT [Concomitant]
     Active Substance: MACITENTAN
     Indication: Product used for unknown indication
     Dosage: UNK
     Route: 065

REACTIONS (34)
  - Hypoxia [Recovering/Resolving]
  - Dizziness [Not Recovered/Not Resolved]
  - Bronchospasm [Recovering/Resolving]
  - Blood pressure decreased [Recovering/Resolving]
  - Dyspepsia [Recovering/Resolving]
  - Asthenia [Recovering/Resolving]
  - Nausea [Recovering/Resolving]
  - Somnolence [Recovered/Resolved]
  - Oxygen saturation decreased [Recovering/Resolving]
  - Abdominal discomfort [Recovering/Resolving]
  - Cough [Not Recovered/Not Resolved]
  - Throat irritation [Recovering/Resolving]
  - Respiratory tract irritation [Recovering/Resolving]
  - Abdominal pain upper [Unknown]
  - Headache [Not Recovered/Not Resolved]
  - Wheezing [Recovering/Resolving]
  - Fatigue [Not Recovered/Not Resolved]
  - Oedema peripheral [Not Recovered/Not Resolved]
  - Axillary pain [Recovering/Resolving]
  - Rales [Not Recovered/Not Resolved]
  - Localised oedema [Not Recovered/Not Resolved]
  - Abdominal distension [Recovering/Resolving]
  - Chest pain [Not Recovered/Not Resolved]
  - Productive cough [Unknown]
  - Oropharyngeal pain [Not Recovered/Not Resolved]
  - Nasopharyngitis [Not Recovered/Not Resolved]
  - Flushing [Recovered/Resolved]
  - Drug intolerance [Unknown]
  - COVID-19 [Not Recovered/Not Resolved]
  - Gastrointestinal disorder [Not Recovered/Not Resolved]
  - Tachycardia [Unknown]
  - Diarrhoea [Not Recovered/Not Resolved]
  - Intentional dose omission [Unknown]
  - Inappropriate schedule of product administration [Unknown]

NARRATIVE: CASE EVENT DATE: 20230101
